FAERS Safety Report 11122586 (Version 1)
Quarter: 2015Q2

REPORT INFORMATION
  Report Type: Spontaneous
  Country: US (occurrence: US)
  Receive Date: 20150519
  Receipt Date: 20150519
  Transmission Date: 20150821
  Serious: Yes (Other)
  Sender: FDA-Public Use
  Company Number: US-TEVA-562356USA

PATIENT
  Age: 81 Year
  Sex: Male

DRUGS (2)
  1. PEMETREXED [Concomitant]
     Active Substance: PEMETREXED
     Indication: MESOTHELIOMA
     Dosage: OVER THE PAST YEAR
     Route: 065
  2. CARBOPLATIN. [Suspect]
     Active Substance: CARBOPLATIN
     Indication: MESOTHELIOMA
     Dosage: OVER THE PAST YEAR
     Route: 065

REACTIONS (2)
  - Superior mesenteric artery syndrome [Recovered/Resolved]
  - Abnormal loss of weight [Recovering/Resolving]
